FAERS Safety Report 7490044-8 (Version None)
Quarter: 2011Q2

REPORT INFORMATION
  Report Type: 
  Country: None (occurrence: None)
  Receive Date: 20110519
  Receipt Date: 20101029
  Transmission Date: 20111010
  Serious: Yes (Other)
  Sender: FDA-Public Use
  Company Number: US-BAYER-201018224NA

PATIENT
  Age: 32 Year
  Sex: Female
  Weight: 124.72 kg

DRUGS (16)
  1. NSAID'S [Concomitant]
     Indication: PAIN
  2. PROAIR HFA [Concomitant]
     Indication: ASTHMA
     Dosage: UNK
     Dates: start: 20080107
  3. AZITHROMYCIN [Concomitant]
     Dosage: UNK
     Dates: start: 20080107
  4. CLARITIN [Concomitant]
     Indication: MULTIPLE ALLERGIES
     Dosage: 10 MG, UNK
  5. YASMIN [Suspect]
     Indication: POLYCYSTIC OVARIES
     Route: 048
     Dates: start: 20050101, end: 20080401
  6. ASPIRIN [Concomitant]
     Dosage: 81 MG, QD
     Dates: start: 20050101
  7. IBUPROFEN [Concomitant]
     Indication: PAIN
  8. LOVENOX [Concomitant]
     Dosage: 120 MG, UNK
     Dates: start: 20080411
  9. ACETAMINOPHEN [Concomitant]
     Indication: HEADACHE
     Dosage: 500-1000 MG EVERY 4-6 HOURS
  10. SUDAFED 12 HOUR [Concomitant]
     Indication: SINUS CONGESTION
     Dosage: 30 MG, QID
  11. YASMIN [Suspect]
     Indication: MENORRHAGIA
     Dosage: UNK
     Dates: start: 20060802, end: 20080321
  12. WARFARIN SODIUM [Concomitant]
     Dosage: 5 MG, UNK
     Dates: start: 20080411
  13. IBUPROFEN [Concomitant]
     Indication: HEADACHE
     Dosage: 200 MG, PRN
  14. LEVOTHYROXINE SODIUM [Concomitant]
     Indication: HYPOTHYROIDISM
     Dosage: 100 MCG/24HR, UNK
     Dates: start: 20040823, end: 20100524
  15. SIMVASTATIN [Concomitant]
     Indication: HYPERCHOLESTEROLAEMIA
     Dosage: 10 MG, UNK
     Dates: start: 20061120, end: 20090627
  16. CIPROFLOXACIN [Concomitant]
     Dosage: UNK
     Dates: start: 20080308

REACTIONS (9)
  - PULMONARY EMBOLISM [None]
  - HYPERTENSION [None]
  - DEEP VEIN THROMBOSIS [None]
  - CHEST PAIN [None]
  - INFARCTION [None]
  - BLOOD PRESSURE ABNORMAL [None]
  - DEPRESSION [None]
  - DYSPNOEA [None]
  - CHEST DISCOMFORT [None]
